FAERS Safety Report 10043585 (Version 1)
Quarter: 2014Q1

REPORT INFORMATION
  Report Type: Spontaneous
  Country: US (occurrence: None)
  Receive Date: 20140327
  Receipt Date: 20140327
  Transmission Date: 20141002
  Serious: Yes (Hospitalization)
  Sender: FDA-Public Use
  Company Number: None

PATIENT
  Age: 76 Year
  Sex: Male
  Weight: 70 kg

DRUGS (1)
  1. WARFARIN [Suspect]
     Route: 048
     Dates: start: 20130213, end: 20140307

REACTIONS (3)
  - International normalised ratio increased [None]
  - Haematuria [None]
  - Drug interaction [None]
